FAERS Safety Report 5306479-5 (Version None)
Quarter: 2007Q2

REPORT INFORMATION
  Report Type: 
  Country: None (occurrence: None)
  Receive Date: 20070416
  Receipt Date: 20070319
  Transmission Date: 20071010
  Serious: Yes (Other)
  Sender: FDA-Public Use
  Company Number: A-US2007-14196

PATIENT
  Age: 19 Month
  Sex: Female
  Weight: 6 kg

DRUGS (13)
  1. VENTAVIS [Suspect]
     Indication: PULMONARY HYPERTENSION
     Dosage: SEE IMAGE
     Route: 055
     Dates: start: 20061228
  2. DIAZEPAM [Concomitant]
  3. KETAMINE (KETAMINE HYDROCHLORIDE) [Concomitant]
  4. CLONIDINE [Concomitant]
  5. DIPIDOLOR (PIRITRAMIDE) [Concomitant]
  6. ACETAMINOPHEN [Concomitant]
  7. IBUPROFEN [Concomitant]
  8. LEVOTHYROXINE SODIUM [Concomitant]
  9. SILDENAFIL (SILDENAFIL) TABLET [Concomitant]
  10. FENTANYL CITRATE [Concomitant]
  11. GENTAMICIN [Concomitant]
  12. TEICOPLANIN (TEICOPLANIN) [Concomitant]
  13. MEROPENEM (MEROPENEM) [Concomitant]

REACTIONS (3)
  - CHOLESTASIS [None]
  - HEPATOMEGALY [None]
  - RIGHT VENTRICULAR FAILURE [None]
